FAERS Safety Report 6367869-5 (Version None)
Quarter: 2009Q3

REPORT INFORMATION
  Report Type: 
  Country: None (occurrence: None)
  Receive Date: 20090921
  Receipt Date: 20090909
  Transmission Date: 20100115
  Serious: Yes (Other)
  Sender: FDA-Public Use
  Company Number: CN-JNJCH-2009024453

PATIENT
  Age: 23 Year
  Sex: Female

DRUGS (1)
  1. COOL MINT LISTERINE [Suspect]
     Indication: DRUG USE FOR UNKNOWN INDICATION
     Dosage: TEXT:UNSPECIFIED
     Route: 048
     Dates: start: 20090830, end: 20090909

REACTIONS (2)
  - FACIAL PALSY [None]
  - GLOSSITIS [None]
